FAERS Safety Report 4563769-1 (Version None)
Quarter: 2005Q1

REPORT INFORMATION
  Report Type: 
  Country: None (occurrence: None)
  Receive Date: 20050128
  Receipt Date: 20050121
  Transmission Date: 20050727
  Serious: Yes (Hospitalization)
  Sender: FDA-Public Use
  Company Number: CA-BRISTOL-MYERS SQUIBB COMPANY-12838413

PATIENT
  Age: 75 Year
  Sex: Female

DRUGS (14)
  1. TEQUIN [Suspect]
     Indication: BRONCHITIS
     Dates: start: 20050104, end: 20050108
  2. ALLOPURINOL [Concomitant]
  3. MONOCOR [Concomitant]
  4. SYNTHROID [Concomitant]
  5. CLONIDINE [Concomitant]
  6. CALCIUM GLUCONATE [Concomitant]
  7. LASIX [Concomitant]
  8. DIOVAN [Concomitant]
  9. TIAZAC [Concomitant]
  10. OXAZEPAM [Concomitant]
  11. GLICLAZIDE [Concomitant]
  12. PULMICORT [Concomitant]
  13. BRICANYL [Concomitant]
     Dosage: IF NEEDED
     Route: 055
  14. CALCITRIOL [Concomitant]

REACTIONS (1)
  - HYPERGLYCAEMIA [None]
